FAERS Safety Report 20152569 (Version 1)
Quarter: 2021Q4

REPORT INFORMATION
  Report Type: Spontaneous
  Country: CN (occurrence: CN)
  Receive Date: 20211206
  Receipt Date: 20211206
  Transmission Date: 20220304
  Serious: Yes (Hospitalization, Other)
  Sender: FDA-Public Use
  Company Number: CN-BRACCO-2021CN05146

PATIENT
  Age: 39 Year
  Sex: Male

DRUGS (1)
  1. MULTIHANCE [Suspect]
     Active Substance: GADOBENATE DIMEGLUMINE
     Indication: Magnetic resonance imaging hepatobiliary
     Dosage: 15 ML, SINGLE
     Route: 042
     Dates: start: 20211028, end: 20211028

REACTIONS (4)
  - Depressed level of consciousness [Recovering/Resolving]
  - Hyperhidrosis [Recovering/Resolving]
  - Abdominal pain [Recovering/Resolving]
  - Hypotension [Recovering/Resolving]

NARRATIVE: CASE EVENT DATE: 20211028
